FAERS Safety Report 5267392-5 (Version None)
Quarter: 2007Q1

REPORT INFORMATION
  Report Type: 
  Country: None (occurrence: None)
  Receive Date: 20070316
  Receipt Date: 20070309
  Transmission Date: 20070707
  Serious: Yes (Hospitalization)
  Sender: FDA-Public Use
  Company Number: US-ELI_LILLY_AND_COMPANY-US200701001958

PATIENT
  Age: 65 Year
  Sex: Male

DRUGS (2)
  1. GEMZAR [Suspect]
     Indication: PANCREATIC CARCINOMA
     Dosage: 2090 MG, UNK
     Route: 042
     Dates: start: 20061027, end: 20061110
  2. DECADRON [Concomitant]

REACTIONS (2)
  - CAPILLARY LEAK SYNDROME [None]
  - LUNG INFILTRATION [None]
